FAERS Safety Report 4592295-9 (Version None)
Quarter: 2005Q1

REPORT INFORMATION
  Report Type: 
  Country: None (occurrence: None)
  Receive Date: 20050228
  Receipt Date: 20041119
  Transmission Date: 20050727
  Serious: No
  Sender: FDA-Public Use
  Company Number: US-BRISTOL-MYERS SQUIBB COMPANY-12772612

PATIENT
  Age: 24 Year
  Sex: Male

DRUGS (4)
  1. ABILIFY [Suspect]
     Indication: PSYCHOTIC DISORDER
     Dosage: PATIENT ALSO TOOK 15 MG/DAY
     Route: 048
     Dates: end: 20041118
  2. TEGRETOL [Concomitant]
  3. KLONOPIN [Concomitant]
  4. SEROQUEL [Concomitant]

REACTIONS (4)
  - AGITATION [None]
  - DYSKINESIA OESOPHAGEAL [None]
  - PANIC ATTACK [None]
  - WEIGHT DECREASED [None]
